FAERS Safety Report 10284522 (Version 1)
Quarter: 2014Q3

REPORT INFORMATION
  Report Type: Spontaneous
  Country: US (occurrence: None)
  Receive Date: 20140703
  Receipt Date: 20140703
  Transmission Date: 20150326
  Serious: Yes (Hospitalization)
  Sender: FDA-Public Use
  Company Number: 2014-US-007969

PATIENT
  Age: 18 Year
  Sex: Female

DRUGS (2)
  1. XYREM [Suspect]
     Active Substance: SODIUM OXYBATE
     Indication: NARCOLEPSY
     Route: 048
     Dates: start: 201301
  2. XYREM [Suspect]
     Active Substance: SODIUM OXYBATE
     Indication: CATAPLEXY
     Route: 048
     Dates: start: 201301

REACTIONS (5)
  - Gastrointestinal disorder [None]
  - Cardiac disorder [None]
  - Weight decreased [None]
  - Off label use [None]
  - Pain in extremity [None]

NARRATIVE: CASE EVENT DATE: 20140601
